FAERS Safety Report 19228447 (Version 1)
Quarter: 2021Q2

REPORT INFORMATION
  Report Type: Report from Study
  Country: CA (occurrence: CA)
  Receive Date: 20210507
  Receipt Date: 20210507
  Transmission Date: 20210717
  Serious: Yes (Hospitalization, Other)
  Sender: FDA-Public Use
  Company Number: CA-JNJFOC-20210506809

PATIENT
  Sex: Male

DRUGS (2)
  1. VITAMINS NOS [Concomitant]
     Active Substance: VITAMINS
     Indication: PRENATAL CARE
     Route: 065
  2. REMICADE [Suspect]
     Active Substance: INFLIXIMAB
     Indication: CROHN^S DISEASE
     Route: 063

REACTIONS (2)
  - Neonatal hypoxia [Unknown]
  - Exposure via breast milk [Unknown]

NARRATIVE: CASE EVENT DATE: 2021
